FAERS Safety Report 9183243 (Version 1)
Quarter: 2012Q4

REPORT INFORMATION
  Report Type: 
  Country: MX (occurrence: MX)
  Receive Date: 20121031
  Receipt Date: 20121031
  Transmission Date: 20130627
  Serious: Yes (Death)
  Sender: FDA-Public Use
  Company Number: PHHY2012MX088460

PATIENT
  Sex: Female

DRUGS (2)
  1. CO-DIOVAN [Suspect]
     Indication: HYPERTENSION
     Dosage: 1 DF (alsartan 160mg and hydrochlorothiazide 12.5 mg), daily
     Route: 048
     Dates: start: 200901, end: 201209
  2. FUROSEMIDE [Concomitant]
     Dosage: 1 DF, daily
     Route: 048
     Dates: start: 201209

REACTIONS (2)
  - Hepatic encephalopathy [Fatal]
  - Hepatic pain [Fatal]
